FAERS Safety Report 8574220-9 (Version None)
Quarter: 2012Q3

REPORT INFORMATION
  Report Type: 
  Country: None (occurrence: None)
  Receive Date: 20120806
  Receipt Date: 20120731
  Transmission Date: 20120928
  Serious: Yes (Hospitalization)
  Sender: FDA-Public Use
  Company Number: US-B.I. PHARMACEUTICALS,INC./RIDGEFIELD-2012-BP-17306BP

PATIENT
  Sex: Female

DRUGS (8)
  1. SYNTHROID [Concomitant]
     Indication: HYPOTHYROIDISM
  2. FLOVENT [Concomitant]
     Indication: CHRONIC OBSTRUCTIVE PULMONARY DISEASE
  3. NORVASC [Concomitant]
     Indication: HYPERTENSION
  4. SPIRIVA [Suspect]
     Indication: CHRONIC OBSTRUCTIVE PULMONARY DISEASE
     Dosage: 18 MCG
     Route: 055
     Dates: start: 20100701
  5. XANAX [Concomitant]
     Indication: ANXIETY
  6. DYAZIDE [Concomitant]
     Indication: HYPERTENSION
  7. PRANDIN [Concomitant]
     Indication: DIABETES MELLITUS
  8. LIPITOR [Concomitant]
     Indication: BLOOD CHOLESTEROL INCREASED

REACTIONS (2)
  - BENIGN LUNG NEOPLASM [None]
  - PRURITUS [None]
